FAERS Safety Report 10174062 (Version 1)
Quarter: 2014Q2

REPORT INFORMATION
  Report Type: Spontaneous
  Country: US (occurrence: US)
  Receive Date: 20140515
  Receipt Date: 20140515
  Transmission Date: 20141212
  Serious: No
  Sender: FDA-Public Use
  Company Number: US-GILEAD-2014-0102411

PATIENT
  Age: 63 Year
  Sex: Female

DRUGS (15)
  1. LETAIRIS [Suspect]
     Indication: SYSTEMIC SCLEROSIS
     Dosage: 10 MG, QD
     Route: 065
     Dates: start: 20130812
  2. CELLCEPT                           /01275102/ [Suspect]
     Dates: start: 201404
  3. CELLCEPT                           /01275102/ [Concomitant]
     Dates: start: 201404
  4. AMLODIPINE [Concomitant]
  5. PLAQUENIL                          /00072602/ [Concomitant]
  6. BUDESONIDE [Concomitant]
  7. METOPROLOL SUCCINATE [Concomitant]
  8. SUCRALFATE [Concomitant]
  9. QUININE SULFATE [Concomitant]
  10. CLARITIN                           /00917501/ [Concomitant]
  11. DYMISTA [Concomitant]
  12. NOVOLOG [Concomitant]
  13. LEVEMIR [Concomitant]
  14. CLIMARA [Concomitant]
  15. NEXIUM                             /01479302/ [Concomitant]

REACTIONS (1)
  - Insomnia [Not Recovered/Not Resolved]
